FAERS Safety Report 7632428-0 (Version None)
Quarter: 2011Q3

REPORT INFORMATION
  Report Type: 
  Country: None (occurrence: None)
  Receive Date: 20110725
  Receipt Date: 20100902
  Transmission Date: 20111222
  Serious: Yes (Other)
  Sender: FDA-Public Use
  Company Number: US-BRISTOL-MYERS SQUIBB COMPANY-15270234

PATIENT
  Age: 70 Year
  Sex: Female
  Weight: 68 kg

DRUGS (2)
  1. CELECOXIB [Interacting]
     Indication: ARTHRITIS
     Dosage: HARD CAPSULE
     Route: 048
     Dates: start: 20100401
  2. COUMADIN [Suspect]
     Indication: CARDIAC FAILURE CONGESTIVE

REACTIONS (2)
  - INTERNATIONAL NORMALISED RATIO FLUCTUATION [None]
  - DRUG INTERACTION [None]
